FAERS Safety Report 5558143-5 (Version None)
Quarter: 2007Q4

REPORT INFORMATION
  Report Type: 
  Country: None (occurrence: None)
  Receive Date: 20071214
  Receipt Date: 20071207
  Transmission Date: 20080405
  Serious: Yes (Death, Life-Threatening, Hospitalization, Other)
  Sender: FDA-Public Use
  Company Number: GR-ABBOTT-06P-066-0333126-00

PATIENT
  Sex: Female
  Weight: 72 kg

DRUGS (7)
  1. HUMIRA [Suspect]
     Indication: RHEUMATOID ARTHRITIS
     Route: 058
     Dates: start: 20041116, end: 20060508
  2. HUMIRA [Suspect]
     Route: 058
     Dates: start: 20060522, end: 20061001
  3. HYDROXYCHLOROQUINE PHOSPHATE [Concomitant]
     Indication: RHEUMATOID ARTHRITIS
     Dates: start: 19980201
  4. BETAXOLOL [Concomitant]
     Indication: HYPERTENSION
     Dates: start: 20021101
  5. TELMISARTAN [Concomitant]
     Indication: HYPERTENSION
     Dates: start: 20021101
  6. DECAL [Concomitant]
     Indication: OSTEOPOROSIS PROPHYLAXIS
     Dates: start: 20040601
  7. COMMERCIAL HUMIRA [Concomitant]
     Indication: RHEUMATOID ARTHRITIS
     Route: 058
     Dates: start: 20031218

REACTIONS (1)
  - GLIOBLASTOMA MULTIFORME [None]
